FAERS Safety Report 9999519 (Version 1)
Quarter: 2014Q1

REPORT INFORMATION
  Report Type: Spontaneous
  Country: US (occurrence: US)
  Receive Date: 20140312
  Receipt Date: 20140312
  Transmission Date: 20141002
  Serious: No
  Sender: FDA-Public Use
  Company Number: US-TEVA-445111USA

PATIENT
  Sex: Male

DRUGS (4)
  1. AMOXICILLIN [Suspect]
     Dosage: 250 MICROGRAM DAILY; 125 MCG, 2 IN ONE DAY
  2. LINZESS (LINACLOTIDE) [Suspect]
     Indication: IRRITABLE BOWEL SYNDROME
     Dosage: 145 MICROGRAM DAILY; 145 MICRGRAM 1-IN-1
     Dates: start: 201310, end: 201310
  3. LINZESS (LINACLOTIDE) [Suspect]
     Indication: CONSTIPATION
  4. TORASEMIDE [Concomitant]
     Dosage: 200 MILLIGRAM DAILY;

REACTIONS (2)
  - Diarrhoea [Not Recovered/Not Resolved]
  - Headache [Recovered/Resolved]
